FAERS Safety Report 9287364 (Version 1)
Quarter: 2013Q2

REPORT INFORMATION
  Report Type: Spontaneous
  Country: US (occurrence: US)
  Receive Date: 20130514
  Receipt Date: 20130514
  Transmission Date: 20140414
  Serious: Yes (Hospitalization, Other)
  Sender: FDA-Public Use
  Company Number: US-AMGEN-USASP2013033047

PATIENT
  Age: 68 Year
  Sex: Male

DRUGS (1)
  1. ENBREL [Suspect]
     Indication: RHEUMATOID ARTHRITIS
     Dosage: 25 MG, 2 TIMES/WK
     Dates: start: 20011101

REACTIONS (7)
  - Intervertebral disc protrusion [Recovered/Resolved]
  - Procedural pain [Recovered/Resolved]
  - Post procedural complication [Recovered/Resolved]
  - Effusion [Recovered/Resolved]
  - Spinal disorder [Recovered/Resolved]
  - Sciatica [Recovered/Resolved]
  - Postoperative wound infection [Recovered/Resolved]
